FAERS Safety Report 10084092 (Version 1)
Quarter: 2014Q2

REPORT INFORMATION
  Report Type: Spontaneous
  Country: GB (occurrence: None)
  Receive Date: 20140415
  Receipt Date: 20140415
  Transmission Date: 20141212
  Serious: Yes (Other)
  Sender: FDA-Public Use
  Company Number: AUR-APL-2014-04440

PATIENT
  Age: 80 Year
  Sex: Female

DRUGS (8)
  1. TRAMADOL [Suspect]
     Indication: PAIN
  2. TRAMADOL [Suspect]
     Indication: SKIN ULCER
  3. ACECLOFENAC [Suspect]
     Indication: PRODUCT USED FOR UNKNOWN INDICATION
  4. FERROUS FUMARATE [Suspect]
     Indication: ANAEMIA
  5. OXYCONTIN (OXYCODONE HYDROCHLORIDE) [Suspect]
     Indication: PRODUCT USED FOR UNKNOWN INDICATION
  6. MACRODANTIN (NITROFURANTOIN) [Suspect]
     Indication: INFECTION
     Dosage: 200 MG (50 MG, 4 IN 1 D), ORAL
     Route: 048
     Dates: start: 20140306, end: 20140309
  7. WARFARIN [Suspect]
     Indication: PRODUCT USED FOR UNKNOWN INDICATION
  8. ZINC [Suspect]
     Indication: PRODUCT USED FOR UNKNOWN INDICATION

REACTIONS (1)
  - Macular degeneration [None]
